FAERS Safety Report 7783583-3 (Version None)
Quarter: 2011Q3

REPORT INFORMATION
  Report Type: 
  Country: None (occurrence: None)
  Receive Date: 20110928
  Receipt Date: 20110920
  Transmission Date: 20111222
  Serious: Yes (Life-Threatening, Other)
  Sender: FDA-Public Use
  Company Number: FR-GENZYME-CLOF-1001794

PATIENT
  Sex: Female
  Weight: 53 kg

DRUGS (3)
  1. CYCLOPHOSPHAMIDE [Suspect]
     Indication: LEUKAEMIA
     Dosage: UNK
     Route: 065
     Dates: start: 20110914, end: 20110918
  2. EVOLTRA [Suspect]
     Indication: LEUKAEMIA
     Dosage: 60 MG, QD
     Route: 042
     Dates: start: 20110914, end: 20110918
  3. MORPHINE [Concomitant]
     Indication: PAIN
     Dosage: UNK
     Dates: start: 20110916

REACTIONS (2)
  - SEPTIC SHOCK [None]
  - GASTROINTESTINAL HAEMORRHAGE [None]
